FAERS Safety Report 6202530-9 (Version None)
Quarter: 2009Q2

REPORT INFORMATION
  Report Type: 
  Country: None (occurrence: None)
  Receive Date: 20090526
  Receipt Date: 20090515
  Transmission Date: 20091009
  Serious: Yes (Other)
  Sender: FDA-Public Use
  Company Number: AU-PFIZER INC-2009191327

PATIENT
  Age: 67 Year

DRUGS (2)
  1. SUTENT [Suspect]
     Dosage: 50 MG, UNK
  2. SUTENT [Suspect]
     Dosage: 25 MG, UNK

REACTIONS (5)
  - C-REACTIVE PROTEIN INCREASED [None]
  - FATIGUE [None]
  - NAUSEA [None]
  - PERFORMANCE STATUS DECREASED [None]
  - SEPSIS [None]
